FAERS Safety Report 17013361 (Version 1)
Quarter: 2019Q4

REPORT INFORMATION
  Report Type: Spontaneous
  Country: US (occurrence: US)
  Receive Date: 20191110
  Receipt Date: 20191110
  Transmission Date: 20200122
  Serious: Yes (Death, Hospitalization)
  Sender: FDA-Public Use
  Company Number: US-KOWA-19US003298

PATIENT

DRUGS (4)
  1. LIVALO [Suspect]
     Active Substance: PITAVASTATIN CALCIUM
     Dosage: 4 UNK
     Dates: start: 20190605, end: 201906
  2. METFORMIN ER [Concomitant]
     Active Substance: METFORMIN HYDROCHLORIDE
     Indication: DIABETES MELLITUS
     Dosage: 1000 MG, BID
     Dates: end: 201906
  3. LIVALO [Suspect]
     Active Substance: PITAVASTATIN CALCIUM
     Indication: BLOOD CHOLESTEROL INCREASED
     Dosage: 4 MG, QD
     Dates: start: 2018, end: 201905
  4. CLONIDINE. [Concomitant]
     Active Substance: CLONIDINE
     Indication: BRONCHITIS
     Dosage: UNK, PRN
     Dates: end: 201906

REACTIONS (3)
  - Cerebrovascular accident [Fatal]
  - Myocardial infarction [Fatal]
  - Therapy cessation [Unknown]

NARRATIVE: CASE EVENT DATE: 201905
